FAERS Safety Report 18865772 (Version 2)
Quarter: 2022Q1

REPORT INFORMATION
  Report Type: Spontaneous
  Country: US (occurrence: US)
  Receive Date: 20210208
  Receipt Date: 20220106
  Transmission Date: 20220423
  Serious: No
  Sender: FDA-Public Use
  Company Number: US-PFIZER INC-2021085136

PATIENT
  Age: 73 Year
  Sex: Female
  Weight: 73.48 kg

DRUGS (2)
  1. CHANTIX [Suspect]
     Active Substance: VARENICLINE TARTRATE
     Indication: Smoking cessation therapy
     Dosage: 0.5 MG, 1X/DAY (WAS TAKING FIRST WEEK DOSE- TABLET BY MOUTH ONCE DAILY)
     Route: 048
     Dates: start: 202006, end: 202006
  2. CHANTIX [Suspect]
     Active Substance: VARENICLINE TARTRATE
     Dosage: 1.0 MG, 1X/DAY (WAS TAKING FIRST WEEK DOSE-TABLET BY MOUTH ONCE DAILY)
     Route: 048

REACTIONS (1)
  - Asthenia [Recovered/Resolved]

NARRATIVE: CASE EVENT DATE: 20200601
